FAERS Safety Report 8434185-7 (Version None)
Quarter: 2012Q2

REPORT INFORMATION
  Report Type: 
  Country: None (occurrence: None)
  Receive Date: 20120613
  Receipt Date: 20120604
  Transmission Date: 20120825
  Serious: Yes (Hospitalization)
  Sender: FDA-Public Use
  Company Number: US-ACTELION-A-US2012-64114

PATIENT

DRUGS (3)
  1. LETAIRIS [Concomitant]
  2. EPOPROSTENOL SODIUM [Suspect]
     Indication: PULMONARY ARTERIAL HYPERTENSION
     Dosage: 60 NG/KG, PER MIN
     Route: 042
     Dates: start: 20101001
  3. SILDENAFIL [Concomitant]
     Dosage: UNK
     Dates: start: 20070901

REACTIONS (3)
  - IDIOPATHIC THROMBOCYTOPENIC PURPURA [None]
  - EPISTAXIS [None]
  - PLATELET COUNT DECREASED [None]
